FAERS Safety Report 8568198-1 (Version None)
Quarter: 2012Q3

REPORT INFORMATION
  Report Type: 
  Country: None (occurrence: None)
  Receive Date: 20120803
  Receipt Date: 20120716
  Transmission Date: 20120928
  Serious: No
  Sender: FDA-Public Use
  Company Number: US-ABBOTT-12P-163-0956258-00

PATIENT
  Sex: Male
  Weight: 136.2 kg

DRUGS (12)
  1. NIASPAN [Suspect]
     Indication: BLOOD CHOLESTEROL INCREASED
     Dates: start: 20120101
  2. NIASPAN [Suspect]
     Indication: BLOOD TRIGLYCERIDES INCREASED
  3. WARFARIN SODIUM [Concomitant]
     Indication: CARDIAC DISORDER
  4. LEVOTHYROXINE SODIUM [Concomitant]
     Indication: PRODUCT USED FOR UNKNOWN INDICATION
  5. HUMIRA [Concomitant]
     Indication: PSORIATIC ARTHROPATHY
  6. PLAVIX [Concomitant]
     Indication: CARDIAC DISORDER
  7. BENICAR [Concomitant]
     Indication: HYPERTENSION
  8. GLYBURIDE [Concomitant]
     Indication: DIABETES MELLITUS
  9. LIPITOR [Concomitant]
     Indication: PRODUCT USED FOR UNKNOWN INDICATION
  10. NORVASC [Concomitant]
     Indication: HYPERTENSION
  11. ALLOPURINOL [Concomitant]
     Indication: GOUT
  12. ZYRTEC [Concomitant]
     Indication: HYPERSENSITIVITY
     Dates: start: 20120710

REACTIONS (1)
  - FLUSHING [None]
